FAERS Safety Report 8474950-3 (Version None)
Quarter: 2012Q2

REPORT INFORMATION
  Report Type: 
  Country: None (occurrence: None)
  Receive Date: 20120628
  Receipt Date: 20120621
  Transmission Date: 20120825
  Serious: Yes (Hospitalization)
  Sender: FDA-Public Use
  Company Number: PHHY2012AU053629

PATIENT

DRUGS (2)
  1. CLOZARIL [Suspect]
     Dosage: 200 MG, UNK
     Dates: start: 20120531
  2. OMEPRAZOLE [Concomitant]

REACTIONS (6)
  - COUGH [None]
  - C-REACTIVE PROTEIN INCREASED [None]
  - INFLUENZA LIKE ILLNESS [None]
  - PYREXIA [None]
  - LETHARGY [None]
  - LIVER FUNCTION TEST ABNORMAL [None]
